FAERS Safety Report 10649068 (Version 2)
Quarter: 2015Q1

REPORT INFORMATION
  Report Type: Spontaneous
  Country: IT (occurrence: None)
  Receive Date: 20141210
  Receipt Date: 20150219
  Transmission Date: 20150720
  Serious: Yes (Other)
  Sender: FDA-Public Use
  Company Number: 2653729

PATIENT
  Age: 53 Year
  Sex: Female

DRUGS (2)
  1. PACLITAXEL. [Concomitant]
     Active Substance: PACLITAXEL
  2. CARBOPLATIN. [Suspect]
     Active Substance: CARBOPLATIN
     Indication: OVARIAN NEOPLASM
     Dosage: CYCLICAL??(NOT OTHERWISE SPECIFIED)
     Route: 042
     Dates: start: 20141010, end: 20141031

REACTIONS (5)
  - Diarrhoea [None]
  - Vomiting [None]
  - Tremor [None]
  - Chest pain [None]
  - Chills [None]

NARRATIVE: CASE EVENT DATE: 20141031
